FAERS Safety Report 4477723-1 (Version None)
Quarter: 2004Q4

REPORT INFORMATION
  Report Type: 
  Country: None (occurrence: None)
  Receive Date: 20041014
  Receipt Date: 20041004
  Transmission Date: 20050328
  Serious: Yes (Death)
  Sender: FDA-Public Use
  Company Number: S04-USA-06454-01

PATIENT
  Age: 32 Year
  Sex: Female

DRUGS (2)
  1. CELEXA [Suspect]
     Dates: start: 20020813, end: 20020813
  2. ZOLOFT [Concomitant]

REACTIONS (4)
  - COMPLETED SUICIDE [None]
  - TOXICOLOGIC TEST ABNORMAL [None]
  - TREATMENT NONCOMPLIANCE [None]
  - VICTIM OF HOMICIDE [None]
